FAERS Safety Report 5786715-1 (Version None)
Quarter: 2008Q2

REPORT INFORMATION
  Report Type: 
  Country: None (occurrence: None)
  Receive Date: 20080619
  Receipt Date: 20080604
  Transmission Date: 20081010
  Serious: Yes (Other)
  Sender: FDA-Public Use
  Company Number: 2008S1009772

PATIENT
  Age: 85 Year
  Sex: Female
  Weight: 70.3075 kg

DRUGS (6)
  1. BYSTOLIC [Suspect]
     Indication: HYPERTENSION
     Dosage: 5 MG; DAILY; ORAL
     Route: 048
     Dates: start: 20080404, end: 20080101
  2. SULAR (CON.) [Concomitant]
  3. AVALIDE (CON.) [Concomitant]
  4. CALCIUM + VITAMIN D (CON.) [Concomitant]
  5. ECOTRIN (CON.) [Concomitant]
  6. TIMOLOL (CON.) [Concomitant]

REACTIONS (2)
  - HAEMORRHAGIC STROKE [None]
  - VISUAL DISTURBANCE [None]
